FAERS Safety Report 21300568 (Version 1)
Quarter: 2022Q3

REPORT INFORMATION
  Report Type: Report from Study
  Country: FR (occurrence: FR)
  Receive Date: 20220907
  Receipt Date: 20220907
  Transmission Date: 20221027
  Serious: Yes (Hospitalization, Other)
  Sender: FDA-Public Use
  Company Number: FR-TAKEDA-2022TUS061800

PATIENT
  Age: 65 Year
  Sex: Male

DRUGS (13)
  1. ICATIBANT [Suspect]
     Active Substance: ICATIBANT ACETATE
     Indication: Hereditary angioedema
     Dosage: 30 MILLIGRAM
     Route: 050
     Dates: start: 20190718
  2. ICATIBANT [Suspect]
     Active Substance: ICATIBANT ACETATE
     Indication: Hereditary angioedema
     Dosage: 30 MILLIGRAM
     Route: 050
     Dates: start: 20190718
  3. ASPIRIN DL-LYSINE [Concomitant]
     Active Substance: ASPIRIN DL-LYSINE
     Indication: Dyslipidaemia
     Dosage: 75 MILLIGRAM, QD
     Route: 048
  4. PLAVIX [Concomitant]
     Active Substance: CLOPIDOGREL BISULFATE
     Indication: Cardiac disorder
     Dosage: 75 MILLIGRAM, QD
     Route: 048
  5. SIMVASTATIN [Concomitant]
     Active Substance: SIMVASTATIN
     Indication: Hypercholesterolaemia
     Dosage: 40 MILLIGRAM, QD
     Route: 048
     Dates: end: 20210126
  6. IRBESARTAN [Concomitant]
     Active Substance: IRBESARTAN
     Indication: Hypertension
     Dosage: 300 MILLIGRAM, QD
     Route: 048
     Dates: end: 20190718
  7. IMOVANE [Concomitant]
     Active Substance: ZOPICLONE
     Indication: Sleep disorder
     Dosage: 7.5 MILLIGRAM, QD
     Route: 048
  8. EBASTINE [Concomitant]
     Active Substance: EBASTINE
     Indication: Antiallergic therapy
     Dosage: 5 MILLIGRAM, QD
     Route: 048
     Dates: end: 20190718
  9. ACETAMINOPHEN [Concomitant]
     Active Substance: ACETAMINOPHEN
     Indication: Pain management
     Dosage: 1 GRAM
     Route: 048
     Dates: start: 20190624, end: 20190704
  10. TRAMADOL [Concomitant]
     Active Substance: TRAMADOL
     Indication: Antiinflammatory therapy
     Dosage: 50 MILLIGRAM
     Route: 048
     Dates: start: 20190624, end: 20190627
  11. ZANADIPINE [Concomitant]
     Indication: Hypertension
     Dosage: 10 MILLIGRAM, QD
     Route: 048
     Dates: start: 20190718
  12. TAHOR [Concomitant]
     Active Substance: ATORVASTATIN CALCIUM
     Indication: Hyperlipidaemia
     Dosage: 80 MILLIGRAM, QD
     Route: 048
     Dates: start: 20210126
  13. TRIMEPRAZINE [Concomitant]
     Active Substance: TRIMEPRAZINE
     Indication: Alcoholism
     Dosage: 15 MILLIGRAM, QD
     Route: 048
     Dates: start: 20211109

REACTIONS (2)
  - Oral neoplasm [Recovered/Resolved]
  - Carotid artery stenosis [Recovered/Resolved]

NARRATIVE: CASE EVENT DATE: 20200821
